FAERS Safety Report 16139803 (Version 2)
Quarter: 2019Q2

REPORT INFORMATION
  Report Type: Spontaneous
  Country: US (occurrence: US)
  Receive Date: 20190330
  Receipt Date: 20190411
  Transmission Date: 20190711
  Serious: No
  Sender: FDA-Public Use
  Company Number: US-GLAXOSMITHKLINE-US2019GSK028418

PATIENT
  Sex: Female
  Weight: 59 kg

DRUGS (19)
  1. MOVANTIK [Concomitant]
     Active Substance: NALOXEGOL OXALATE
     Indication: CONSTIPATION
  2. CLONAZEPAM. [Concomitant]
     Active Substance: CLONAZEPAM
  3. LIOTHYRONINE [Concomitant]
     Active Substance: LIOTHYRONINE
  4. AMITRIPTYLINE [Concomitant]
     Active Substance: AMITRIPTYLINE
  5. OMEPRAZOLE. [Concomitant]
     Active Substance: OMEPRAZOLE
  6. METHOTREXATE. [Concomitant]
     Active Substance: METHOTREXATE
  7. LEVOTHYROXINE. [Concomitant]
     Active Substance: LEVOTHYROXINE
  8. GABAPENTIN. [Concomitant]
     Active Substance: GABAPENTIN
  9. ALLERGY SHOT [Concomitant]
     Active Substance: UNSPECIFIED INGREDIENT
  10. LINZESS [Concomitant]
     Active Substance: LINACLOTIDE
  11. HYDROCODONE [Concomitant]
     Active Substance: HYDROCODONE
  12. SINGULAIR [Concomitant]
     Active Substance: MONTELUKAST SODIUM
     Indication: SEASONAL ALLERGY
  13. RESTASIS [Concomitant]
     Active Substance: CYCLOSPORINE
  14. XELJANZ XR [Suspect]
     Active Substance: TOFACITINIB CITRATE
  15. ROPINIROLE. [Suspect]
     Active Substance: ROPINIROLE
     Indication: PAIN IN EXTREMITY
     Dosage: .25 MG, QD
     Route: 048
  16. FOLIC ACID+VITB12+VITB6+WHEAT DEXTRIN [Concomitant]
  17. NABUMETONE. [Concomitant]
     Active Substance: NABUMETONE
  18. PRAVASTATIN. [Concomitant]
     Active Substance: PRAVASTATIN
  19. REMICADE [Concomitant]
     Active Substance: INFLIXIMAB

REACTIONS (6)
  - Neck surgery [Unknown]
  - Constipation [Unknown]
  - Fall [Unknown]
  - Back injury [Unknown]
  - Malaise [Unknown]
  - Pain [Unknown]
